FAERS Safety Report 7883288-4 (Version None)
Quarter: 2011Q4

REPORT INFORMATION
  Report Type: 
  Country: None (occurrence: None)
  Receive Date: 20111102
  Receipt Date: 20111026
  Transmission Date: 20120403
  Serious: Yes (Hospitalization)
  Sender: FDA-Public Use
  Company Number: PHEH2009US12475

PATIENT
  Sex: Female

DRUGS (4)
  1. ACODIN [Concomitant]
  2. ALBUTEROL [Concomitant]
  3. EXJADE [Suspect]
     Indication: SICKLE CELL ANAEMIA
     Dosage: 625 MG, QD
     Route: 048
  4. EXJADE [Suspect]
     Dosage: 1250 MG, DAILY
     Route: 048

REACTIONS (3)
  - ASTHMA [None]
  - PAIN [None]
  - SICKLE CELL ANAEMIA WITH CRISIS [None]
